FAERS Safety Report 8875141 (Version 1)
Quarter: 2012Q4

REPORT INFORMATION
  Report Type: 
  Country: US (occurrence: US)
  Receive Date: 20121026
  Receipt Date: 20121026
  Transmission Date: 20130627
  Serious: No
  Sender: FDA-Public Use
  Company Number: US-AMGEN-USASP2012044930

PATIENT
  Age: 52 Year
  Sex: Male

DRUGS (3)
  1. ENBREL [Suspect]
     Indication: RHEUMATOID ARTHRITIS
     Dosage: 50 mg, qwk
     Dates: start: 20120421
  2. HYDROXYCHLOROQUINE [Concomitant]
     Dosage: 2 mg, UNK
     Dates: start: 201101
  3. METHOTREXATE [Concomitant]
     Dosage: 20 mg, qwk
     Dates: start: 201101

REACTIONS (1)
  - Drug effect incomplete [Not Recovered/Not Resolved]
